FAERS Safety Report 7390921-2 (Version None)
Quarter: 2011Q2

REPORT INFORMATION
  Report Type: 
  Country: None (occurrence: None)
  Receive Date: 20110404
  Receipt Date: 20090804
  Transmission Date: 20111010
  Serious: No
  Sender: FDA-Public Use
  Company Number: 2009BI024768

PATIENT
  Age: 37 Year
  Sex: Male

DRUGS (1)
  1. TYSABRI [Suspect]
     Indication: MULTIPLE SCLEROSIS
     Route: 042
     Dates: start: 20080101

REACTIONS (5)
  - MENISCUS LESION [None]
  - ARTHRALGIA [None]
  - JOINT SWELLING [None]
  - TENDON DISORDER [None]
  - ARTHROPATHY [None]
